FAERS Safety Report 14844337 (Version 1)
Quarter: 2018Q2

REPORT INFORMATION
  Report Type: Spontaneous
  Country: US (occurrence: US)
  Receive Date: 20180503
  Receipt Date: 20180503
  Transmission Date: 20180711
  Serious: No
  Sender: FDA-Public Use
  Company Number: PHEH2018US016032

PATIENT
  Age: 85 Year
  Sex: Male

DRUGS (6)
  1. VITAMIN C [Concomitant]
     Active Substance: ASCORBIC ACID
     Indication: PRODUCT USED FOR UNKNOWN INDICATION
     Route: 065
  2. SIMVASTATIN. [Concomitant]
     Active Substance: SIMVASTATIN
     Indication: PRODUCT USED FOR UNKNOWN INDICATION
     Route: 065
  3. LEVOTHYROXINE. [Concomitant]
     Active Substance: LEVOTHYROXINE
     Indication: PRODUCT USED FOR UNKNOWN INDICATION
     Route: 065
  4. SUTENT [Suspect]
     Active Substance: SUNITINIB MALATE
     Indication: GASTROINTESTINAL STROMAL TUMOUR
     Dosage: 50 MG, 2 DAYSON/14 DAYS OFF (ONCE DAILY  FOR 4 WEEKS THE NOFF FOR 2 WEEKS)
     Route: 048
     Dates: start: 20180222, end: 20180308
  5. GLEEVEC [Suspect]
     Active Substance: IMATINIB MESYLATE
     Indication: GASTROINTESTINAL STROMAL TUMOUR
     Dosage: UNK
     Route: 065
     Dates: start: 201708, end: 20171225
  6. ASPIRIN. [Concomitant]
     Active Substance: ASPIRIN
     Indication: PRODUCT USED FOR UNKNOWN INDICATION
     Route: 065

REACTIONS (20)
  - Tooth disorder [Unknown]
  - Rash pruritic [Unknown]
  - Urine abnormality [Unknown]
  - Sensitivity of teeth [Unknown]
  - Feeling abnormal [Unknown]
  - Bowel movement irregularity [Unknown]
  - Hypersensitivity [Unknown]
  - Swelling [Unknown]
  - Abdominal discomfort [Unknown]
  - Memory impairment [Unknown]
  - Alopecia [Unknown]
  - Jaw disorder [Unknown]
  - Rash [Unknown]
  - Dizziness [Unknown]
  - Depression [Unknown]
  - Weight decreased [Unknown]
  - Mental disorder [Unknown]
  - Asthenia [Unknown]
  - Abdominal pain [Unknown]
  - Fatigue [Unknown]
